FAERS Safety Report 24360782 (Version 2)
Quarter: 2024Q4

REPORT INFORMATION
  Report Type: Report from Study
  Country: DE (occurrence: DE)
  Receive Date: 20240925
  Receipt Date: 20241015
  Transmission Date: 20250115
  Serious: Yes (Hospitalization)
  Sender: ROCHE
  Company Number: DE-ML39632-2299233-0

PATIENT
  Age: 52 Year
  Sex: Male
  Weight: 87 kg

DRUGS (9)
  1. OCREVUS [Suspect]
     Active Substance: OCRELIZUMAB
     Indication: Primary progressive multiple sclerosis
     Route: 042
     Dates: start: 20200804, end: 20200818
  2. OCREVUS [Suspect]
     Active Substance: OCRELIZUMAB
     Route: 042
     Dates: start: 20210209
  3. BACLOFEN [Concomitant]
     Active Substance: BACLOFEN
     Indication: Muscle spasticity
     Route: 048
     Dates: start: 20221025, end: 20221112
  4. Comirnaty [Concomitant]
     Indication: COVID-19 immunisation
     Route: 030
     Dates: start: 20211209, end: 20211209
  5. Comirnaty [Concomitant]
     Route: 030
     Dates: start: 20210520, end: 20210520
  6. Comirnaty [Concomitant]
     Route: 030
     Dates: start: 20210408, end: 20210408
  7. CHOLECALCIFEROL [Concomitant]
     Active Substance: CHOLECALCIFEROL
     Indication: Vitamin D deficiency
     Route: 048
     Dates: start: 20221025, end: 20221112
  8. ALFUZOSIN [Concomitant]
     Active Substance: ALFUZOSIN
     Indication: Bladder dysfunction
     Route: 048
     Dates: start: 202101, end: 202112
  9. ALFUZOSIN [Concomitant]
     Active Substance: ALFUZOSIN
     Route: 048
     Dates: start: 201705, end: 202101

REACTIONS (2)
  - Urinary tract infection [Recovered/Resolved]
  - Uhthoff^s phenomenon [Recovered/Resolved]

NARRATIVE: CASE EVENT DATE: 20240411
